FAERS Safety Report 6016011-9 (Version None)
Quarter: 2008Q4

REPORT INFORMATION
  Report Type: 
  Country: None (occurrence: None)
  Receive Date: 20081222
  Receipt Date: 20081212
  Transmission Date: 20090506
  Serious: Yes (Other)
  Sender: FDA-Public Use
  Company Number: US-PFIZER INC-2008153324

PATIENT
  Sex: Female
  Weight: 120 kg

DRUGS (9)
  1. AROMASIN [Suspect]
     Indication: BREAST CANCER
  2. LAPATINIB [Suspect]
     Indication: BREAST CANCER
     Dosage: 5 TABLET DAILY
     Route: 048
     Dates: start: 20070501
  3. ZOLEDRONIC ACID [Concomitant]
  4. FLUTICASONE [Concomitant]
  5. SALMETEROL [Concomitant]
  6. WARFARIN SODIUM [Concomitant]
  7. THEOPHYLLINE [Concomitant]
  8. CALCIUM [Concomitant]
  9. VITAMIN D [Concomitant]

REACTIONS (10)
  - CHEILITIS [None]
  - COUGH [None]
  - DYSPNOEA [None]
  - DYSPNOEA EXERTIONAL [None]
  - FOLLICULITIS [None]
  - HEPATIC ENZYME INCREASED [None]
  - PRURITUS [None]
  - RASH PAPULAR [None]
  - SKIN ULCER [None]
  - WEIGHT DECREASED [None]
